FAERS Safety Report 8028833-3 (Version None)
Quarter: 2012Q1

REPORT INFORMATION
  Report Type: 
  Country: None (occurrence: None)
  Receive Date: 20120106
  Receipt Date: 20120104
  Transmission Date: 20120608
  Serious: Yes (Other)
  Sender: FDA-Public Use
  Company Number: US-JNJFOC-20120101259

PATIENT
  Age: 43 Year
  Sex: Female

DRUGS (6)
  1. STELARA [Suspect]
     Route: 058
     Dates: start: 20100514
  2. STELARA [Suspect]
     Route: 058
     Dates: start: 20111206
  3. STELARA [Suspect]
     Route: 058
     Dates: start: 20101214
  4. STELARA [Suspect]
     Route: 058
     Dates: start: 20111011
  5. STELARA [Suspect]
     Route: 058
     Dates: start: 20100909
  6. STELARA [Suspect]
     Indication: PSORIASIS
     Route: 058
     Dates: start: 20110331

REACTIONS (1)
  - CEREBROVASCULAR ACCIDENT [None]
